FAERS Safety Report 7621157-5 (Version None)
Quarter: 2011Q3

REPORT INFORMATION
  Report Type: 
  Country: None (occurrence: None)
  Receive Date: 20110719
  Receipt Date: 20110708
  Transmission Date: 20111222
  Serious: Yes (Other)
  Sender: FDA-Public Use
  Company Number: PHHY2011JP45954

PATIENT
  Sex: Male

DRUGS (1)
  1. ZOMETA [Suspect]

REACTIONS (8)
  - FISTULA [None]
  - ORAL MUCOSAL ERYTHEMA [None]
  - ORAL PUSTULE [None]
  - OSTEONECROSIS OF JAW [None]
  - ORAL DISORDER [None]
  - IMPAIRED HEALING [None]
  - SWELLING [None]
  - PAIN IN JAW [None]
